FAERS Safety Report 8571728-7 (Version None)
Quarter: 2012Q3

REPORT INFORMATION
  Report Type: 
  Country: None (occurrence: None)
  Receive Date: 20120724
  Receipt Date: 20120710
  Transmission Date: 20120928
  Serious: Yes (Hospitalization, Other)
  Sender: FDA-Public Use
  Company Number: 2012P1020127

PATIENT
  Age: 62 Year
  Weight: 92.9874 kg

DRUGS (6)
  1. TESTOSTERONE [Concomitant]
  2. KLONOPIN [Concomitant]
  3. WARFARIN SODIUM [Suspect]
     Indication: PULMONARY EMBOLISM
     Dosage: 2 MG;QD;PO
     Route: 048
     Dates: start: 20120309, end: 20120401
  4. NORCO [Concomitant]
  5. FLUTICASONE PROPIONATE [Concomitant]
  6. METHADONE HYDROCHLORIDE [Concomitant]

REACTIONS (8)
  - FALL [None]
  - SKIN DISCOLOURATION [None]
  - LIMB INJURY [None]
  - CARDIAC FAILURE [None]
  - PROTHROMBIN TIME PROLONGED [None]
  - DIZZINESS [None]
  - LOSS OF CONSCIOUSNESS [None]
  - INTERNATIONAL NORMALISED RATIO INCREASED [None]
